FAERS Safety Report 16565378 (Version 1)
Quarter: 2019Q3

REPORT INFORMATION
  Report Type: Spontaneous
  Country: US (occurrence: US)
  Receive Date: 20190712
  Receipt Date: 20190712
  Transmission Date: 20191004
  Serious: Yes (Death, Hospitalization)
  Sender: FDA-Public Use
  Company Number: US-ACTELION-A-CH2019-192683

PATIENT
  Age: 42 Year
  Sex: Female

DRUGS (1)
  1. EPOPROSTENOL SODIUM. [Suspect]
     Active Substance: EPOPROSTENOL SODIUM
     Indication: PULMONARY ARTERIAL HYPERTENSION
     Route: 042

REACTIONS (5)
  - Gastrectomy [Unknown]
  - Gastritis erosive [Unknown]
  - Death [Fatal]
  - Upper gastrointestinal haemorrhage [Unknown]
  - Weight decreased [Unknown]
